FAERS Safety Report 9135028 (Version 1)
Quarter: 2013Q1

REPORT INFORMATION
  Report Type: Report from Study
  Country: US (occurrence: US)
  Receive Date: 20130304
  Receipt Date: 20130304
  Transmission Date: 20140127
  Serious: Yes (Congenital Anomaly, Other)
  Sender: FDA-Public Use
  Company Number: US-UCBSA-079574

PATIENT
  Age: 1 Day
  Sex: Female
  Weight: 3.6 kg

DRUGS (2)
  1. KEPPRA XR [Suspect]
     Indication: EPILEPSY
     Dosage: DOSE : 1000 MG
     Route: 064
     Dates: start: 20111001, end: 20120701
  2. ZOLOFT [Concomitant]
     Indication: DEPRESSION
     Dosage: DOSE : 50 MG
     Route: 064
     Dates: start: 20111001, end: 20120701

REACTIONS (3)
  - Cleft lip [Unknown]
  - Foetal heart rate deceleration [Unknown]
  - Foetal exposure during pregnancy [Recovered/Resolved]
